FAERS Safety Report 6396530-6 (Version None)
Quarter: 2009Q4

REPORT INFORMATION
  Report Type: 
  Country: None (occurrence: None)
  Receive Date: 20091012
  Receipt Date: 20091006
  Transmission Date: 20100525
  Serious: Yes (Hospitalization)
  Sender: FDA-Public Use
  Company Number: NL-PFIZER INC-2008036195

PATIENT
  Age: 55 Year

DRUGS (19)
  1. MARAVIROC [Suspect]
     Indication: HIV INFECTION
     Dosage: 150 MG, 2X/DAY
     Route: 048
     Dates: start: 20071127
  2. DARUNAVIR [Concomitant]
     Route: 048
     Dates: start: 20071127
  3. RITONAVIR [Concomitant]
     Route: 048
     Dates: start: 20071127
  4. ENFUVIRTIDE [Concomitant]
     Route: 058
     Dates: start: 20071127
  5. AMLODIPINE [Concomitant]
     Route: 048
     Dates: start: 20070413
  6. METOPROLOL [Concomitant]
     Route: 048
     Dates: start: 20000711
  7. GLIMEPIRIDE [Concomitant]
     Route: 048
     Dates: start: 20060503
  8. PERINDOPRIL [Concomitant]
     Route: 048
     Dates: start: 20000829
  9. FOLIC ACID [Concomitant]
     Route: 048
  10. TEMAZEPAM [Concomitant]
     Route: 048
  11. NITROGLYCERIN [Concomitant]
     Route: 061
     Dates: start: 20070101
  12. ISOSORBIDE MONONITRATE [Concomitant]
     Route: 048
     Dates: start: 20000711
  13. TELBIVUDINE [Concomitant]
     Route: 048
     Dates: start: 20000117
  14. OMEPRAZOLE [Concomitant]
     Route: 048
     Dates: start: 20070414
  15. FUROSEMIDE [Concomitant]
     Route: 048
     Dates: start: 20080214
  16. SPIRONOLACTONE [Concomitant]
     Route: 048
     Dates: start: 20080117
  17. CLOPIDOGREL [Concomitant]
     Route: 048
     Dates: start: 20080414
  18. PRAVASTATIN [Concomitant]
     Route: 048
     Dates: start: 20080414
  19. CARBASALATE [Concomitant]
     Route: 048
     Dates: start: 20000417

REACTIONS (1)
  - ACUTE CORONARY SYNDROME [None]
